FAERS Safety Report 18130425 (Version 2)
Quarter: 2020Q4

REPORT INFORMATION
  Report Type: Spontaneous
  Country: US (occurrence: US)
  Receive Date: 20200810
  Receipt Date: 20201211
  Transmission Date: 20210113
  Serious: Yes (Death, Hospitalization, Other)
  Sender: FDA-Public Use
  Company Number: US-ASTRAZENECA-2020SE98799

PATIENT
  Age: 23788 Day
  Sex: Male
  Weight: 86.6 kg

DRUGS (39)
  1. DULCOLAX NOS [Concomitant]
     Active Substance: BISACODYL OR DOCUSATE SODIUM
     Indication: CONSTIPATION
     Dates: start: 201702
  2. LEVSIN [Concomitant]
     Active Substance: HYOSCYAMINE SULFATE
     Indication: ANTICHOLINERGIC SYNDROME
     Dates: start: 201702
  3. DESOXIMETASONE. [Concomitant]
     Active Substance: DESOXIMETASONE
  4. ONDASETRON [Concomitant]
     Active Substance: ONDANSETRON
  5. TRAMADOL. [Concomitant]
     Active Substance: TRAMADOL
  6. PROTONIX [Suspect]
     Active Substance: PANTOPRAZOLE SODIUM
     Indication: ULCER
     Route: 065
     Dates: start: 201702
  7. NEURONTIN [Concomitant]
     Active Substance: GABAPENTIN
     Indication: ANTICONVULSANT DRUG LEVEL
     Dates: start: 201702
  8. EPOGEN [Concomitant]
     Active Substance: ERYTHROPOIETIN
  9. COMPAZINE [Concomitant]
     Active Substance: PROCHLORPERAZINE MALEATE
  10. HALDOL [Concomitant]
     Active Substance: HALOPERIDOL
  11. HYDROCORTISONE. [Concomitant]
     Active Substance: HYDROCORTISONE
  12. DULOXETINE. [Concomitant]
     Active Substance: DULOXETINE
  13. PROTONIX [Suspect]
     Active Substance: PANTOPRAZOLE SODIUM
     Indication: ULCER
     Dosage: GENERIC
     Route: 065
  14. ATIVAN [Concomitant]
     Active Substance: LORAZEPAM
  15. MEGESTROL ACETATE. [Concomitant]
     Active Substance: MEGESTROL ACETATE
  16. VALACYCLOVIR [Concomitant]
     Active Substance: VALACYCLOVIR HYDROCHLORIDE
  17. LYRICA [Concomitant]
     Active Substance: PREGABALIN
  18. NEXIUM [Suspect]
     Active Substance: ESOMEPRAZOLE MAGNESIUM
     Route: 048
     Dates: start: 2008, end: 2013
  19. NORCO [Concomitant]
     Active Substance: ACETAMINOPHEN\HYDROCODONE BITARTRATE
     Indication: PAIN
     Dates: start: 201702
  20. MORPHINE [Concomitant]
     Active Substance: MORPHINE
     Indication: PAIN
     Dates: start: 201702
  21. AMITRIPTYLINE [Concomitant]
     Active Substance: AMITRIPTYLINE
  22. RANITIDINE. [Concomitant]
     Active Substance: RANITIDINE
  23. TORSEMIDE. [Concomitant]
     Active Substance: TORSEMIDE
  24. GENTAMICIN. [Concomitant]
     Active Substance: GENTAMICIN
  25. LEVOFLOXACIN. [Concomitant]
     Active Substance: LEVOFLOXACIN
  26. PERCOCET [Concomitant]
     Active Substance: ACETAMINOPHEN\OXYCODONE HYDROCHLORIDE
  27. ESCITALOPRAM [Concomitant]
     Active Substance: ESCITALOPRAM OXALATE
  28. FOLIC ACID. [Concomitant]
     Active Substance: FOLIC ACID
  29. LANTUS [Concomitant]
     Active Substance: INSULIN GLARGINE
  30. LISINOPRIL AND HYDROCHLOROTHIAZIDE [Concomitant]
     Active Substance: HYDROCHLOROTHIAZIDE\LISINOPRIL
  31. ACTOS [Concomitant]
     Active Substance: PIOGLITAZONE HYDROCHLORIDE
  32. VALIUM [Concomitant]
     Active Substance: DIAZEPAM
  33. PRILOSEC [Suspect]
     Active Substance: OMEPRAZOLE MAGNESIUM
     Route: 048
  34. CALCITROL [Concomitant]
     Indication: SUPPLEMENTATION THERAPY
     Dates: start: 201702
  35. SODIUM BICARBONATE. [Concomitant]
     Active Substance: SODIUM BICARBONATE
  36. METRONIDAZOLE. [Concomitant]
     Active Substance: METRONIDAZOLE
  37. NYSTATIN. [Concomitant]
     Active Substance: NYSTATIN
  38. WARFARIN [Concomitant]
     Active Substance: WARFARIN
  39. PRAVACHOL [Concomitant]
     Active Substance: PRAVASTATIN SODIUM

REACTIONS (10)
  - Chronic kidney disease-mineral and bone disorder [Unknown]
  - Death [Fatal]
  - Renal failure [Unknown]
  - End stage renal disease [Unknown]
  - Acute kidney injury [Unknown]
  - Hyperparathyroidism secondary [Unknown]
  - Renal injury [Unknown]
  - Nephrogenic anaemia [Unknown]
  - Metabolic acidosis [Unknown]
  - Chronic kidney disease [Unknown]

NARRATIVE: CASE EVENT DATE: 20170305
